FAERS Safety Report 5008141-5 (Version None)
Quarter: 2006Q2

REPORT INFORMATION
  Report Type: 
  Country: None (occurrence: None)
  Receive Date: 20060404
  Receipt Date: 20051121
  Transmission Date: 20061013
  Serious: Yes (Hospitalization)
  Sender: FDA-Public Use
  Company Number: 2005120677

PATIENT
  Age: 32 Year
  Sex: Female

DRUGS (3)
  1. GEODON [Suspect]
     Indication: ILL-DEFINED DISORDER
     Dosage: 160 MG
  2. ZOLOFT [Suspect]
     Indication: ILL-DEFINED DISORDER
  3. KETEK [Suspect]
     Indication: SINUSITIS

REACTIONS (2)
  - BRADYCARDIA [None]
  - SYNCOPE [None]
